FAERS Safety Report 7418497-1 (Version None)
Quarter: 2011Q2

REPORT INFORMATION
  Report Type: 
  Country: None (occurrence: None)
  Receive Date: 20110415
  Receipt Date: 20110404
  Transmission Date: 20111010
  Serious: Yes (Other)
  Sender: FDA-Public Use
  Company Number: FR-CEPHALON-2011001663

PATIENT

DRUGS (1)
  1. MODAFINIL [Suspect]
     Route: 064

REACTIONS (1)
  - SPINA BIFIDA [None]
